FAERS Safety Report 9446409 (Version 2)
Quarter: 2013Q4

REPORT INFORMATION
  Report Type: Spontaneous
  Country: US (occurrence: US)
  Receive Date: 20130807
  Receipt Date: 20131106
  Transmission Date: 20140711
  Serious: No
  Sender: FDA-Public Use
  Company Number: US-AMGEN-USASP2013047028

PATIENT
  Age: 57 Year
  Sex: Female

DRUGS (2)
  1. ENBREL [Suspect]
     Indication: RHEUMATOID ARTHRITIS
     Dosage: 50 MG, 2 TIMES/WK
     Route: 065
     Dates: start: 20130523
  2. ENBREL [Suspect]
     Indication: PSORIASIS
     Dosage: UNK
     Route: 065

REACTIONS (5)
  - Pruritus [Not Recovered/Not Resolved]
  - Dry skin [Not Recovered/Not Resolved]
  - Skin plaque [Not Recovered/Not Resolved]
  - Muscle strain [Unknown]
  - Psoriasis [Not Recovered/Not Resolved]
